FAERS Safety Report 9758295 (Version 1)
Quarter: 2013Q4

REPORT INFORMATION
  Report Type: Spontaneous
  Country: US (occurrence: US)
  Receive Date: 20131216
  Receipt Date: 20131216
  Transmission Date: 20140711
  Serious: Yes (Other)
  Sender: FDA-Public Use
  Company Number: US-TEVA-414129USA

PATIENT
  Age: 28 Year
  Sex: Female
  Weight: 56.3 kg

DRUGS (2)
  1. PARAGARD 380A [Suspect]
     Indication: CONTRACEPTION
     Dates: start: 201303, end: 201306
  2. LAMICTAL [Concomitant]
     Indication: CONVULSION

REACTIONS (5)
  - Pelvic inflammatory disease [Not Recovered/Not Resolved]
  - Metrorrhagia [Unknown]
  - Menstruation irregular [Unknown]
  - Abdominal pain lower [Unknown]
  - Abdominal distension [Unknown]
